FAERS Safety Report 11333189 (Version 1)
Quarter: 2015Q3

REPORT INFORMATION
  Report Type: Spontaneous
  Country: US (occurrence: US)
  Receive Date: 20150803
  Receipt Date: 20150803
  Transmission Date: 20151125
  Serious: Yes (Other)
  Sender: FDA-Public Use
  Company Number: US-ELI_LILLY_AND_COMPANY-US200609000807

PATIENT
  Age: 44 Year
  Sex: Male
  Weight: 133.79 kg

DRUGS (12)
  1. LORAZEPAM. [Concomitant]
     Active Substance: LORAZEPAM
     Dosage: 0.5 MG, UNK
  2. BENZTROPINE MESYLATE. [Concomitant]
     Active Substance: BENZTROPINE MESYLATE
     Dosage: 2 MG, 2/D
  3. TRILEPTAL [Concomitant]
     Active Substance: OXCARBAZEPINE
     Dosage: 600 MG, 2/D
  4. RANITIDINE [Concomitant]
     Active Substance: RANITIDINE\RANITIDINE HYDROCHLORIDE
     Dosage: 150 MG, 2/D
  5. LISINOPRIL. [Concomitant]
     Active Substance: LISINOPRIL
     Dosage: 10 MG, 2/D
  6. SEROQUEL [Concomitant]
     Active Substance: QUETIAPINE FUMARATE
     Dosage: 100 MG, 3/D
  7. ZYPREXA [Suspect]
     Active Substance: OLANZAPINE
     Indication: ANXIETY
     Dosage: UNK, UNK
     Route: 065
     Dates: start: 199808, end: 2000
  8. QUETIAPINE [Concomitant]
     Active Substance: QUETIAPINE
     Dates: start: 200408
  9. NIASPAN [Concomitant]
     Active Substance: NIACIN
     Dosage: 500 MG, 2/D
  10. ZYPREXA [Suspect]
     Active Substance: OLANZAPINE
     Dates: start: 200008, end: 200103
  11. BUPROPION. [Concomitant]
     Active Substance: BUPROPION
     Dates: start: 200203, end: 200408
  12. ASPIRIN. [Concomitant]
     Active Substance: ASPIRIN
     Dosage: 325 MG, UNK

REACTIONS (3)
  - Hyperlipidaemia [Unknown]
  - Type 2 diabetes mellitus [Not Recovered/Not Resolved]
  - Hypertension [Unknown]

NARRATIVE: CASE EVENT DATE: 20051026
